FAERS Safety Report 7584559-1 (Version None)
Quarter: 2011Q2

REPORT INFORMATION
  Report Type: 
  Country: None (occurrence: None)
  Receive Date: 20110630
  Receipt Date: 20110628
  Transmission Date: 20111010
  Serious: Yes (Disabling)
  Sender: FDA-Public Use
  Company Number: GB-ACTELION-A-CH2011-46688

PATIENT
  Age: 42 Year
  Sex: Male

DRUGS (6)
  1. INSULIN [Concomitant]
  2. TRACLEER [Suspect]
     Indication: PULMONARY HYPERTENSION
     Dosage: 125 MG, UNK
     Route: 048
     Dates: start: 20090401, end: 20110401
  3. SPIRONOLACTONE [Concomitant]
  4. ALLOPURINOL [Concomitant]
  5. FUROSEMIDE [Concomitant]
  6. SILDENAFIL CITRATE [Concomitant]

REACTIONS (1)
  - NEUROPATHY PERIPHERAL [None]
